FAERS Safety Report 8069842-8 (Version None)
Quarter: 2012Q1

REPORT INFORMATION
  Report Type: 
  Country: None (occurrence: None)
  Receive Date: 20120125
  Receipt Date: 20120125
  Transmission Date: 20120608
  Serious: Yes (Other)
  Sender: FDA-Public Use
  Company Number: None

PATIENT
  Age: 28 Year
  Sex: Female

DRUGS (2)
  1. LEXAPRO [Suspect]
     Indication: DEPRESSION
     Dates: start: 20111214, end: 20120103
  2. LEXAPRO [Suspect]
     Indication: ANXIETY
     Dates: start: 20111214, end: 20120103

REACTIONS (4)
  - ANXIETY [None]
  - DEAFNESS [None]
  - INSOMNIA [None]
  - TINNITUS [None]
